FAERS Safety Report 24172210 (Version 1)
Quarter: 2024Q3

REPORT INFORMATION
  Report Type: Spontaneous
  Country: US (occurrence: US)
  Receive Date: 20240805
  Receipt Date: 20240805
  Transmission Date: 20241017
  Serious: Yes (Other)
  Sender: JOHNSON AND JOHNSON
  Company Number: US-JNJFOC-20240784311

PATIENT
  Sex: Male
  Weight: 156 kg

DRUGS (8)
  1. TRACLEER [Suspect]
     Active Substance: BOSENTAN
     Indication: Product used for unknown indication
     Route: 048
  2. PENTOXIFYLLINE [Concomitant]
     Active Substance: PENTOXIFYLLINE
     Dosage: 180 QTY, 1 REFILLS
     Route: 048
     Dates: start: 20240727
  3. PENTOXIFYLLINE [Concomitant]
     Active Substance: PENTOXIFYLLINE
     Dosage: 1 PO BID, 60 QTY, 5 REFILLS
     Route: 048
  4. NIFEDIPINE [Concomitant]
     Active Substance: NIFEDIPINE
     Dosage: 180 QTY, 1 REFILL
     Route: 048
     Dates: start: 20240727
  5. NIFEDIPINE [Concomitant]
     Active Substance: NIFEDIPINE
     Dosage: 1 TABLET PO BID, 60 QTY, 5 REFILLS
     Route: 048
     Dates: start: 20240321
  6. SILDENAFIL CITRATE [Concomitant]
     Active Substance: SILDENAFIL CITRATE
     Dosage: 270 QTY, 1 REFILLS
     Route: 048
     Dates: start: 20240727
  7. SILDENAFIL CITRATE [Concomitant]
     Active Substance: SILDENAFIL CITRATE
     Dosage: 90 QTY, 3 REFILLS
     Route: 048
     Dates: start: 20240423
  8. ERGOCALCIFEROL [Concomitant]
     Active Substance: ERGOCALCIFEROL
     Dosage: 1 PO Q WEEK
     Route: 048

REACTIONS (6)
  - Scleroderma [Unknown]
  - Foot amputation [Unknown]
  - Skin ulcer [Unknown]
  - Oesophageal motility disorder [Unknown]
  - Erythema [Unknown]
  - Emotional distress [Unknown]
